FAERS Safety Report 19240171 (Version 1)
Quarter: 2021Q2

REPORT INFORMATION
  Report Type: Report from Study
  Country: ES (occurrence: ES)
  Receive Date: 20210510
  Receipt Date: 20210510
  Transmission Date: 20210717
  Serious: Yes (Hospitalization, Other)
  Sender: FDA-Public Use
  Company Number: ES-ROCHE-2761439

PATIENT
  Age: 71 Year
  Sex: Female
  Weight: 72.3 kg

DRUGS (7)
  1. CABOZANTINIB [Suspect]
     Active Substance: CABOZANTINIB
     Indication: NEUROENDOCRINE TUMOUR
     Dosage: ON 30/DEC/2020, SHE RECEIVED THE MOST RECENT DOSE(20 MG) OF CABOZANTINIB PRIOR TO SAE.
     Route: 048
     Dates: start: 20201103
  2. ATEZOLIZUMAB. [Suspect]
     Active Substance: ATEZOLIZUMAB
     Indication: NEUROENDOCRINE TUMOUR
     Dosage: ON 30/DEC/2020, SHE RECEIVED THE MOST RECENT DOSE OF ATEOLIZUMAB PRIOR TO SAE.
     Route: 042
     Dates: start: 20201103
  3. ACETYLSALICYLIC ACID [Concomitant]
     Active Substance: ASPIRIN
     Route: 048
  4. MANIDIPINE [Concomitant]
     Active Substance: MANIDIPINE
     Indication: HYPERCHOLESTEROLAEMIA
     Route: 048
     Dates: start: 2010
  5. INSULIN [Concomitant]
     Active Substance: INSULIN NOS
     Indication: DIABETES MELLITUS
     Route: 058
     Dates: start: 201405
  6. PREDNISONE. [Suspect]
     Active Substance: PREDNISONE
     Indication: NEUROENDOCRINE TUMOUR
     Route: 048
     Dates: start: 20210119
  7. ENALAPRIL [Concomitant]
     Active Substance: ENALAPRIL
     Indication: HYPERTENSION
     Route: 048
     Dates: start: 2010

REACTIONS (3)
  - Febrile neutropenia [Unknown]
  - Metastases to liver [Not Recovered/Not Resolved]
  - Hyperglycaemia [Recovered/Resolved]

NARRATIVE: CASE EVENT DATE: 20201124
